FAERS Safety Report 24041539 (Version 1)
Quarter: 2024Q3

REPORT INFORMATION
  Report Type: Spontaneous
  Country: US (occurrence: US)
  Receive Date: 20240702
  Receipt Date: 20240702
  Transmission Date: 20241017
  Serious: No
  Sender: SAREPTA THERAPEUTICS
  Company Number: US-SAREPTA THERAPEUTICS INC.-SRP2023-003943

PATIENT
  Age: 8 Year
  Sex: Male
  Weight: 26.304 kg

DRUGS (13)
  1. EXONDYS 51 [Suspect]
     Active Substance: ETEPLIRSEN
     Indication: Duchenne muscular dystrophy
     Dosage: 700 MILLIGRAM, WEEKLY
     Route: 042
     Dates: start: 20220408, end: 20231012
  2. EXONDYS 51 [Suspect]
     Active Substance: ETEPLIRSEN
     Dosage: 700 MILLIGRAM, WEEKLY
     Route: 042
     Dates: start: 20231026
  3. PREDNISONE [Concomitant]
     Active Substance: PREDNISONE
     Indication: Product used for unknown indication
     Dosage: 100 MILLIGRAM, SATURDAY AND SUNDAY
  4. DEFLAZACORT [Concomitant]
     Active Substance: DEFLAZACORT
     Indication: Product used for unknown indication
     Dosage: 22.75 MILLIGRAM PER MILLILITRE, QD, 0.7ML
  5. SODIUM CHLORIDE [Concomitant]
     Active Substance: SODIUM CHLORIDE
     Indication: Product used for unknown indication
     Dosage: 0.65 PERCENT NASAL GEL,1 SPRAY
     Route: 045
  6. VITAMINS NOS [Concomitant]
     Active Substance: VITAMINS
     Indication: Product used for unknown indication
     Dosage: 1 GUMMIE
  7. CORTEF [Concomitant]
     Active Substance: HYDROCORTISONE
     Indication: Illness
     Dosage: 100 MILLIGRAM, ONCE PRN,
     Route: 030
  8. CORTEF [Concomitant]
     Active Substance: HYDROCORTISONE
     Indication: Vomiting
  9. CORTEF [Concomitant]
     Active Substance: HYDROCORTISONE
     Indication: Loss of consciousness
  10. VITAMIN C [Concomitant]
     Active Substance: ASCORBIC ACID
     Indication: Product used for unknown indication
     Dosage: 25 MILLIGRAM, QD
     Route: 048
  11. ALENDRONATE [Concomitant]
     Active Substance: ALENDRONATE SODIUM
     Indication: Product used for unknown indication
     Dosage: 10 MILLIGRAM, 2 TABLETS ONCE/WEEK
     Route: 048
  12. CHOLECALCIFEROL [Concomitant]
     Active Substance: CHOLECALCIFEROL
     Indication: Product used for unknown indication
     Dosage: 50 MICROGRAM, QD (2000 IU)
     Route: 048
  13. EMFLAZA [Concomitant]
     Active Substance: DEFLAZACORT
     Indication: Product used for unknown indication
     Dosage: 18 MILLIGRAM, QD
     Route: 048

REACTIONS (5)
  - Infusion site extravasation [Unknown]
  - Catheter site swelling [Recovered/Resolved]
  - Catheter site pain [Recovered/Resolved]
  - Incorrect dose administered [Unknown]
  - Device issue [Unknown]

NARRATIVE: CASE EVENT DATE: 20231019
